FAERS Safety Report 11054958 (Version 1)
Quarter: 2015Q2

REPORT INFORMATION
  Report Type: Spontaneous
  Country: US (occurrence: None)
  Receive Date: 20150421
  Receipt Date: 20150421
  Transmission Date: 20150821
  Serious: Yes (Life-Threatening, Other)
  Sender: FDA-Public Use
  Company Number: None

PATIENT
  Age: 57 Year
  Sex: Female
  Weight: 75.3 kg

DRUGS (3)
  1. RANITIDINE [Concomitant]
     Active Substance: RANITIDINE\RANITIDINE HYDROCHLORIDE
  2. AMOX/K CLAV 875-125 TAB SANDOZ [Suspect]
     Active Substance: AMOXICILLIN\CLAVULANATE POTASSIUM
     Indication: SINUSITIS
     Dosage: 875-125 TAB, ONE TABLET
     Route: 048
     Dates: start: 20141229, end: 20150107
  3. TIMOLOL MAL [Concomitant]

REACTIONS (4)
  - Drug hypersensitivity [None]
  - Pruritus [None]
  - Jaundice [None]
  - Cholestasis [None]

NARRATIVE: CASE EVENT DATE: 20150326
